FAERS Safety Report 14924992 (Version 5)
Quarter: 2019Q2

REPORT INFORMATION
  Report Type: Report from Study
  Country: BR (occurrence: BR)
  Receive Date: 20180522
  Receipt Date: 20190413
  Transmission Date: 20190711
  Serious: Yes (Hospitalization)
  Sender: FDA-Public Use
  Company Number: PHHY2018BR021250

PATIENT
  Sex: Female
  Weight: 74 kg

DRUGS (6)
  1. COSENTYX [Suspect]
     Active Substance: SECUKINUMAB
     Dosage: UNK
     Route: 065
     Dates: start: 20181007
  2. ADALIMUMAB [Suspect]
     Active Substance: ADALIMUMAB
     Indication: PSORIATIC ARTHROPATHY
     Dosage: UNK
     Route: 065
     Dates: start: 2015
  3. ADALIMUMAB [Suspect]
     Active Substance: ADALIMUMAB
     Indication: ANKYLOSING SPONDYLITIS
  4. COSENTYX [Suspect]
     Active Substance: SECUKINUMAB
     Indication: PSORIATIC ARTHROPATHY
     Dosage: 300 MG, QW
     Route: 058
     Dates: start: 20180106
  5. COSENTYX [Suspect]
     Active Substance: SECUKINUMAB
     Indication: ANKYLOSING SPONDYLITIS
     Dosage: 300 MG, QMO (2 INJECTABLE PENS OF 150 MG)
     Route: 058
     Dates: start: 20180404, end: 20180504
  6. COSENTYX [Suspect]
     Active Substance: SECUKINUMAB
     Dosage: 300 MG, QMO
     Route: 058
     Dates: start: 20181212

REACTIONS (12)
  - Urinary tract infection [Recovering/Resolving]
  - Weight decreased [Unknown]
  - Uterine inflammation [Unknown]
  - Haemoglobin decreased [Unknown]
  - Blood urea abnormal [Not Recovered/Not Resolved]
  - Bone erosion [Unknown]
  - Anaemia [Not Recovered/Not Resolved]
  - Uterine haemorrhage [Unknown]
  - Haemorrhage [Unknown]
  - Arthritis [Unknown]
  - Injection site erythema [Unknown]
  - Musculoskeletal pain [Unknown]
